FAERS Safety Report 16895842 (Version 2)
Quarter: 2019Q4

REPORT INFORMATION
  Report Type: Spontaneous
  Country: JP (occurrence: JP)
  Receive Date: 20191008
  Receipt Date: 20191107
  Transmission Date: 20200122
  Serious: Yes (Hospitalization, Other)
  Sender: FDA-Public Use
  Company Number: JP-PFIZER INC-2019278322

PATIENT
  Age: 67 Year
  Sex: Male

DRUGS (2)
  1. XELJANZ [Suspect]
     Active Substance: TOFACITINIB CITRATE
     Indication: RHEUMATOID ARTHRITIS
     Dosage: UNK
     Route: 048
     Dates: start: 20181206, end: 20190609
  2. PREDNISOLONE. [Suspect]
     Active Substance: PREDNISOLONE
     Indication: RHEUMATOID ARTHRITIS
     Dosage: 2 MG, 1X/DAY
     Route: 048

REACTIONS (25)
  - Aspartate aminotransferase increased [Unknown]
  - Blood creatinine increased [Unknown]
  - Mean cell volume increased [Unknown]
  - Rheumatoid factor increased [Unknown]
  - Vitamin B12 increased [Unknown]
  - Gamma-glutamyltransferase increased [Unknown]
  - Blood glucose increased [Unknown]
  - Pneumonia [Recovered/Resolved]
  - Blood lactate dehydrogenase increased [Unknown]
  - Blood uric acid decreased [Unknown]
  - Haemoglobin decreased [Unknown]
  - White blood cell count increased [Unknown]
  - Protein total decreased [Unknown]
  - Blood cholesterol increased [Unknown]
  - Blood potassium increased [Unknown]
  - Heart rate increased [Unknown]
  - Blood cholinesterase decreased [Unknown]
  - Lymphocyte count decreased [Recovered/Resolved]
  - Blood albumin decreased [Unknown]
  - Blood creatine phosphokinase increased [Unknown]
  - Monocyte count increased [Unknown]
  - Neutrophil count increased [Unknown]
  - Red blood cell sedimentation rate increased [Unknown]
  - Amylase increased [Unknown]
  - Mean cell haemoglobin increased [Unknown]

NARRATIVE: CASE EVENT DATE: 20190609
